FAERS Safety Report 23345165 (Version 1)
Quarter: 2023Q4

REPORT INFORMATION
  Report Type: Spontaneous
  Country: US (occurrence: US)
  Receive Date: 20231228
  Receipt Date: 20231228
  Transmission Date: 20240109
  Serious: No
  Sender: FDA-Public Use
  Company Number: US-OPELLA-2023OHG020281

PATIENT
  Age: 13 Year

DRUGS (1)
  1. ICY HOT KIDS PAIN RELIEF ROLL-ON [Suspect]
     Active Substance: MENTHOL
     Indication: Product used for unknown indication

REACTIONS (1)
  - Burning sensation [Unknown]
